FAERS Safety Report 4542182-7 (Version None)
Quarter: 2004Q4

REPORT INFORMATION
  Report Type: 
  Country: None (occurrence: None)
  Receive Date: 20041227
  Receipt Date: 20041222
  Transmission Date: 20050328
  Serious: Yes (Other)
  Sender: FDA-Public Use
  Company Number: 2004-12-1183

PATIENT
  Sex: Female

DRUGS (2)
  1. REBETOL [Suspect]
     Indication: HEPATITIS C
     Dosage: ORAL
     Route: 048
  2. INTRON A [Suspect]
     Indication: HEPATITIS C
     Dosage: SUBCUTANEOUS
     Route: 058

REACTIONS (6)
  - BLINDNESS [None]
  - CATARACT [None]
  - DIARRHOEA [None]
  - DRUG INEFFECTIVE [None]
  - EYE DISORDER [None]
  - VOMITING [None]
